FAERS Safety Report 24765265 (Version 1)
Quarter: 2024Q4

REPORT INFORMATION
  Report Type: Spontaneous
  Country: US (occurrence: None)
  Receive Date: 20241219
  Receipt Date: 20241219
  Transmission Date: 20250114
  Serious: Yes (Hospitalization)
  Sender: Public
  Company Number: None

PATIENT
  Age: 65 Year
  Sex: Male
  Weight: 80 kg

DRUGS (1)
  1. RIVAROXABAN [Suspect]
     Active Substance: RIVAROXABAN
     Indication: Vascular operation
     Dosage: FREQUENCY : DAILY;?
     Route: 048
     Dates: start: 20231213, end: 20240103

REACTIONS (2)
  - Vascular graft occlusion [None]
  - Peripheral arterial occlusive disease [None]

NARRATIVE: CASE EVENT DATE: 20240103
